FAERS Safety Report 7698659-9 (Version None)
Quarter: 2011Q3

REPORT INFORMATION
  Report Type: 
  Country: None (occurrence: None)
  Receive Date: 20110818
  Receipt Date: 20110818
  Transmission Date: 20111222
  Serious: Yes (Hospitalization)
  Sender: FDA-Public Use
  Company Number: None

PATIENT
  Age: 83 Year
  Sex: Male
  Weight: 88.4 kg

DRUGS (1)
  1. DIPHENHYDRAMINE HCL [Suspect]
     Indication: ALLERGY PROPHYLAXIS
     Dosage: 25 MG EVERY DAY PO
     Route: 048
     Dates: start: 20110626, end: 20110629

REACTIONS (4)
  - DEHYDRATION [None]
  - CONFUSIONAL STATE [None]
  - HYPOTHYROIDISM [None]
  - HYPONATRAEMIA [None]
